FAERS Safety Report 14211629 (Version 1)
Quarter: 2017Q4

REPORT INFORMATION
  Report Type: Spontaneous
  Country: US (occurrence: None)
  Receive Date: 20171121
  Receipt Date: 20171121
  Transmission Date: 20180321
  Serious: No
  Sender: FDA-Public Use
  Company Number: None

PATIENT
  Age: 72 Year
  Sex: Female

DRUGS (1)
  1. SILDENAFIL TAB 20 MG [Suspect]
     Active Substance: SILDENAFIL

REACTIONS (4)
  - Cough [None]
  - Rhinorrhoea [None]
  - Drug dose omission [None]
  - Respiratory tract congestion [None]

NARRATIVE: CASE EVENT DATE: 20171120
